FAERS Safety Report 21668271 (Version 1)
Quarter: 2022Q4

REPORT INFORMATION
  Report Type: Spontaneous
  Country: TW (occurrence: TW)
  Receive Date: 20221201
  Receipt Date: 20221201
  Transmission Date: 20230112
  Serious: Yes (Other)
  Sender: FDA-Public Use
  Company Number: TW-GLAXOSMITHKLINE-TW2022APC173392

PATIENT

DRUGS (6)
  1. LAMIVUDINE [Suspect]
     Active Substance: LAMIVUDINE
     Indication: HIV infection
     Dosage: 150 MG, Z(EVERY 12 HRS)
  2. LAMIVUDINE [Suspect]
     Active Substance: LAMIVUDINE
     Dosage: UNK
  3. EFAVIRENZ [Suspect]
     Active Substance: EFAVIRENZ
     Indication: HIV infection
     Dosage: 600 MG, QD
  4. EFAVIRENZ [Suspect]
     Active Substance: EFAVIRENZ
     Dosage: UNK
  5. ZERIT [Suspect]
     Active Substance: STAVUDINE
     Indication: HIV infection
     Dosage: 40 MG, Z(EVERY 12 HR)
  6. ZERIT [Suspect]
     Active Substance: STAVUDINE
     Dosage: UNK

REACTIONS (15)
  - Immune reconstitution inflammatory syndrome [Unknown]
  - Malaise [Unknown]
  - Febrile neutropenia [Unknown]
  - Abscess limb [Unknown]
  - Septic shock [Unknown]
  - Adrenal neoplasm [Unknown]
  - Extradural neoplasm [Unknown]
  - Spinal cord neoplasm [Recovering/Resolving]
  - Hypoaesthesia [Recovered/Resolved]
  - Leiomyoma [Unknown]
  - Paraplegia [Unknown]
  - Spinal cord compression [Recovered/Resolved]
  - Schwannoma [Unknown]
  - Epstein-Barr virus infection [Unknown]
  - Smooth muscle cell neoplasm [Unknown]
